FAERS Safety Report 9216854 (Version 1)
Quarter: 2013Q2

REPORT INFORMATION
  Report Type: Spontaneous
  Country: US (occurrence: US)
  Receive Date: 20130408
  Receipt Date: 20130408
  Transmission Date: 20140414
  Serious: Yes (Other)
  Sender: FDA-Public Use
  Company Number: US-PFIZER INC-2013074809

PATIENT
  Age: 49 Year
  Sex: Female

DRUGS (1)
  1. CAMPTOSAR [Suspect]
     Indication: COLON CANCER
     Dosage: 326 MG, CYCLIC, EVERY 2 WEEKS
     Dates: start: 20121204

REACTIONS (1)
  - Pancytopenia [Unknown]
